FAERS Safety Report 19722923 (Version 1)
Quarter: 2021Q3

REPORT INFORMATION
  Report Type: Spontaneous
  Country: CA (occurrence: CA)
  Receive Date: 20210820
  Receipt Date: 20210820
  Transmission Date: 20211014
  Serious: Yes (Other)
  Sender: FDA-Public Use
  Company Number: CA-JNJFOC-20210839358

PATIENT
  Age: 26 Year
  Sex: Male

DRUGS (1)
  1. INFLIXIMAB, RECOMBINANT [Suspect]
     Active Substance: INFLIXIMAB
     Indication: CROHN^S DISEASE
     Route: 042

REACTIONS (7)
  - Off label use [Unknown]
  - Tonsillar disorder [Unknown]
  - Intentional product use issue [Unknown]
  - Blood pressure increased [Unknown]
  - Feeding disorder [Unknown]
  - Inappropriate schedule of product administration [Unknown]
  - Weight decreased [Unknown]
